FAERS Safety Report 5413059-X (Version None)
Quarter: 2007Q3

REPORT INFORMATION
  Report Type: 
  Country: None (occurrence: None)
  Receive Date: 20070813
  Receipt Date: 20070801
  Transmission Date: 20080115
  Serious: Yes (Hospitalization)
  Sender: FDA-Public Use
  Company Number: PFIZER INC-2007063047

PATIENT
  Age: 65 Year
  Sex: Male
  Weight: 70 kg

DRUGS (1)
  1. SUTENT [Suspect]
     Route: 048
     Dates: start: 20070116, end: 20070702

REACTIONS (3)
  - BRONCHITIS [None]
  - PNEUMONIA [None]
  - RENAL FAILURE [None]
